FAERS Safety Report 8308533-2 (Version None)
Quarter: 2012Q2

REPORT INFORMATION
  Report Type: 
  Country: None (occurrence: None)
  Receive Date: 20120419
  Receipt Date: 20120405
  Transmission Date: 20120825
  Serious: Yes (Other)
  Sender: FDA-Public Use
  Company Number: AUR-APL-2012-01737

PATIENT
  Age: 49 Year
  Sex: Female
  Weight: 71 kg

DRUGS (7)
  1. MULTIVITAMIN (VIGRAN) [Concomitant]
  2. PABRINEX (PARENTROVITE) [Concomitant]
  3. FLUOXETINE [Suspect]
     Indication: PRODUCT USED FOR UNKNOWN INDICATION
     Dates: start: 20120116
  4. ACETAMINOPHEN [Concomitant]
  5. TRAMADOL HCL [Suspect]
     Indication: PAIN
     Dosage: ORAL
     Route: 048
     Dates: start: 20110102, end: 20120109
  6. THIAMINE HCL [Concomitant]
  7. FOLIC ACID [Concomitant]

REACTIONS (2)
  - CONVULSION [None]
  - HYPOGLYCAEMIA [None]
